FAERS Safety Report 6495121-6 (Version None)
Quarter: 2009Q4

REPORT INFORMATION
  Report Type: 
  Country: None (occurrence: None)
  Receive Date: 20091214
  Receipt Date: 20090430
  Transmission Date: 20100525
  Serious: No
  Sender: FDA-Public Use
  Company Number: US-BRISTOL-MYERS SQUIBB COMPANY-14610828

PATIENT
  Age: 8 Year
  Sex: Female

DRUGS (2)
  1. ABILIFY [Suspect]
  2. SEROQUEL [Suspect]

REACTIONS (4)
  - HALLUCINATION [None]
  - METABOLIC DISORDER [None]
  - OVERDOSE [None]
  - WEIGHT INCREASED [None]
